FAERS Safety Report 26177264 (Version 1)
Quarter: 2025Q4

REPORT INFORMATION
  Report Type: Spontaneous
  Country: US (occurrence: US)
  Receive Date: 20251219
  Receipt Date: 20251219
  Transmission Date: 20260118
  Serious: No
  Sender: GLAXOSMITHKLINE
  Company Number: US-GSK-US2025160581

PATIENT
  Age: 54 Year
  Sex: Female

DRUGS (2)
  1. NUCALA [Suspect]
     Active Substance: MEPOLIZUMAB
     Indication: Asthma
     Dosage: 100 MG, Q4W (28 DAYS)
     Dates: start: 202510
  2. NUCALA [Suspect]
     Active Substance: MEPOLIZUMAB
     Indication: Hypereosinophilic syndrome

REACTIONS (5)
  - Product dose omission issue [Unknown]
  - Wrong technique in device usage process [Unknown]
  - Product prescribing issue [Unknown]
  - Therapeutic response shortened [Unknown]
  - Product use issue [Unknown]

NARRATIVE: CASE EVENT DATE: 20251212
